FAERS Safety Report 16126220 (Version 2)
Quarter: 2019Q2

REPORT INFORMATION
  Report Type: Spontaneous
  Country: US (occurrence: US)
  Receive Date: 20190328
  Receipt Date: 20190401
  Transmission Date: 20190711
  Serious: No
  Sender: FDA-Public Use
  Company Number: US-SA-2019SA080264

PATIENT
  Age: 73 Year
  Sex: Male

DRUGS (1)
  1. LOVENOX [Suspect]
     Active Substance: ENOXAPARIN SODIUM
     Indication: URINARY TRACT DISORDER
     Dosage: 120/0.8 ML
     Route: 065

REACTIONS (1)
  - Device issue [Unknown]
